FAERS Safety Report 5957332-5 (Version None)
Quarter: 2008Q4

REPORT INFORMATION
  Report Type: 
  Country: None (occurrence: None)
  Receive Date: 20081118
  Receipt Date: 20081110
  Transmission Date: 20090506
  Serious: Yes (Hospitalization)
  Sender: FDA-Public Use
  Company Number: US-ELI_LILLY_AND_COMPANY-US200809003874

PATIENT
  Sex: Female
  Weight: 77.098 kg

DRUGS (9)
  1. BYETTA [Suspect]
     Indication: TYPE 2 DIABETES MELLITUS
     Dosage: 5 UG, 2/D
     Route: 058
     Dates: start: 20050101, end: 20050101
  2. BYETTA [Suspect]
     Dosage: 10 UG, 2/D
     Route: 058
     Dates: start: 20050101
  3. GLUCOPHAGE [Concomitant]
     Dosage: 1000 MG, 2/D
  4. ASPIRIN [Concomitant]
     Dosage: UNK, DAILY (1/D)
  5. TRICOR [Concomitant]
     Dosage: 145 MG, DAILY (1/D)
  6. ACTOS [Concomitant]
     Dosage: 30 MG, DAILY (1/D)
  7. CARTIA /USA/ [Concomitant]
     Dosage: 120 MG, DAILY (1/D)
  8. NEXIUM [Concomitant]
     Dosage: 40 MG, DAILY (1/D)
  9. CRESTOR [Concomitant]
     Dosage: 5 MG, DAILY (1/D)

REACTIONS (5)
  - CARDIAC PACEMAKER INSERTION [None]
  - CHOLECYSTECTOMY [None]
  - EMOTIONAL DISTRESS [None]
  - HERNIA [None]
  - NAUSEA [None]
